FAERS Safety Report 12782409 (Version 2)
Quarter: 2016Q3

REPORT INFORMATION
  Report Type: Spontaneous
  Country: US (occurrence: US)
  Receive Date: 20160927
  Receipt Date: 20160929
  Transmission Date: 20161109
  Serious: No
  Sender: FDA-Public Use
  Company Number: US-009507513-1609USA001366

PATIENT
  Age: 31 Year
  Sex: Female
  Weight: 63.49 kg

DRUGS (1)
  1. NASONEX [Suspect]
     Active Substance: MOMETASONE FUROATE
     Indication: VASOMOTOR RHINITIS
     Dosage: 2 SPRAYS IN EACH NOSE EVERY DAY

REACTIONS (4)
  - Product quality issue [Unknown]
  - Product use issue [Unknown]
  - Head discomfort [Not Recovered/Not Resolved]
  - Underdose [Unknown]

NARRATIVE: CASE EVENT DATE: 20160829
